FAERS Safety Report 23364165 (Version 1)
Quarter: 2024Q1

REPORT INFORMATION
  Report Type: Spontaneous
  Country: US (occurrence: US)
  Receive Date: 20240104
  Receipt Date: 20240104
  Transmission Date: 20240409
  Serious: Yes (Death, Other)
  Sender: FDA-Public Use
  Company Number: US-SUN PHARMACEUTICAL INDUSTRIES LTD-2023R1-425995

PATIENT
  Sex: Male

DRUGS (1)
  1. YONSA [Suspect]
     Active Substance: ABIRATERONE ACETATE
     Indication: Product used for unknown indication
     Dosage: TAKE 4 TABS BY MOUTH ONCE A DAY
     Route: 065
     Dates: start: 20230808

REACTIONS (1)
  - Death [Fatal]
